FAERS Safety Report 20380288 (Version 1)
Quarter: 2022Q1

REPORT INFORMATION
  Report Type: Spontaneous
  Country: FR (occurrence: FR)
  Receive Date: 20220126
  Receipt Date: 20220126
  Transmission Date: 20220423
  Serious: Yes (Hospitalization, Other)
  Sender: FDA-Public Use
  Company Number: FR-AFSSAPS-AVCN20211810

PATIENT
  Age: 17 Year
  Sex: Female

DRUGS (5)
  1. BROMAZEPAM [Suspect]
     Active Substance: BROMAZEPAM
     Indication: Anxiety
     Dosage: 10 MILLIGRAM, 10 MG (ENVIRONS 60 MG (TOOK 10 TABLETS))
     Route: 048
     Dates: start: 20190824, end: 20190824
  2. PIPERACILLIN AND TAZOBACTAM [Suspect]
     Active Substance: PIPERACILLIN SODIUM\TAZOBACTAM SODIUM
     Indication: Product used for unknown indication
     Dosage: UNK (8 CIGARETTES PAR 24 H)
     Route: 055
  3. COCAINE [Suspect]
     Active Substance: COCAINE
     Indication: Product used for unknown indication
     Dosage: UNK
     Route: 065
     Dates: start: 201907, end: 201907
  4. CANNABIS SATIVA FLOWERING TOP [Suspect]
     Active Substance: CANNABIS SATIVA FLOWERING TOP
     Indication: Product used for unknown indication
     Dosage: UNK
     Route: 055
     Dates: start: 201811
  5. TOBACCO LEAF [Suspect]
     Active Substance: TOBACCO LEAF
     Indication: Product used for unknown indication
     Dosage: UNK (8 CIGARETTES PER 24 H)
     Route: 055

REACTIONS (8)
  - Suicide attempt [Recovered/Resolved]
  - Drug abuse [Not Recovered/Not Resolved]
  - Decreased appetite [Recovering/Resolving]
  - Toxicity to various agents [Recovered/Resolved]
  - Anxiety [Recovering/Resolving]
  - Weight decreased [Recovering/Resolving]
  - Sleep disorder [Recovering/Resolving]
  - Agitation [Recovered/Resolved]

NARRATIVE: CASE EVENT DATE: 20181101
